FAERS Safety Report 6114312-7 (Version None)
Quarter: 2009Q1

REPORT INFORMATION
  Report Type: 
  Country: None (occurrence: None)
  Receive Date: 20090312
  Receipt Date: 20090102
  Transmission Date: 20090719
  Serious: No
  Sender: FDA-Public Use
  Company Number: US-ABBOTT-09P-163-0495669-00

PATIENT
  Age: 56 Year
  Sex: Male

DRUGS (7)
  1. DEPAKOTE [Suspect]
     Indication: DEPRESSION
     Route: 048
     Dates: start: 20040101
  2. DEPAKOTE [Suspect]
     Dosage: DOSE DECREASED
  3. CITALOPRAM HYDROBROMIDE [Suspect]
     Indication: DEPRESSION
     Route: 048
     Dates: start: 20081001
  4. NEBIVOLOL HCL [Suspect]
     Indication: HYPERTENSION
     Route: 048
     Dates: start: 20070101
  5. ZYPREXA [Suspect]
     Indication: DEPRESSION
     Route: 048
     Dates: start: 20081001
  6. LISINOPRIL [Concomitant]
     Indication: HYPERTENSION
     Route: 048
     Dates: start: 20060101
  7. CHOLESTYRAMINE [Concomitant]
     Indication: DIVERTICULITIS
     Route: 048
     Dates: start: 20060101

REACTIONS (1)
  - TREMOR [None]
